FAERS Safety Report 6447137-3 (Version None)
Quarter: 2009Q4

REPORT INFORMATION
  Report Type: 
  Country: None (occurrence: None)
  Receive Date: 20091119
  Receipt Date: 20091110
  Transmission Date: 20100525
  Serious: Yes (Life-Threatening, Hospitalization, Other)
  Sender: FDA-Public Use
  Company Number: JP-ASTRAZENECA-2009SE12818

PATIENT
  Age: 6548 Day
  Sex: Female

DRUGS (7)
  1. SEROQUEL [Suspect]
     Dosage: LARGE DOSE
     Route: 048
     Dates: start: 20090906, end: 20090906
  2. RISPERDAL [Suspect]
     Route: 048
  3. SOLANAX [Suspect]
     Route: 048
  4. AKINETON [Suspect]
     Route: 048
  5. TARIA [Suspect]
     Route: 048
  6. IBUPROFEN [Concomitant]
     Route: 048
  7. SG [Concomitant]

REACTIONS (11)
  - ALTERED STATE OF CONSCIOUSNESS [None]
  - DECUBITUS ULCER [None]
  - DISSEMINATED INTRAVASCULAR COAGULATION [None]
  - HYPERTHERMIA [None]
  - INTENTIONAL OVERDOSE [None]
  - LIVER DISORDER [None]
  - PNEUMONIA [None]
  - RHABDOMYOLYSIS [None]
  - SUICIDE ATTEMPT [None]
  - URTICARIA [None]
  - WRONG DRUG ADMINISTERED [None]
